FAERS Safety Report 4609602-0 (Version None)
Quarter: 2005Q1

REPORT INFORMATION
  Report Type: 
  Country: None (occurrence: None)
  Receive Date: 20050314
  Receipt Date: 20050302
  Transmission Date: 20050727
  Serious: Yes (Hospitalization)
  Sender: FDA-Public Use
  Company Number: DEU-2005-0001305

PATIENT
  Sex: Female

DRUGS (4)
  1. OXYCODONE HCL [Suspect]
     Indication: CANCER PAIN
     Dosage: SEE IMAGE
     Route: 048
     Dates: start: 20040801, end: 20041201
  2. OXYCODONE HCL [Suspect]
     Indication: CANCER PAIN
     Dosage: SEE IMAGE
     Route: 048
     Dates: start: 20041201
  3. OINTMENT [Concomitant]
  4. HORMON [Concomitant]

REACTIONS (14)
  - ABDOMINAL PAIN UPPER [None]
  - ASTHENIA [None]
  - CHEST DISCOMFORT [None]
  - CONSTIPATION [None]
  - DYSPHAGIA [None]
  - DYSPHORIA [None]
  - EUPHORIC MOOD [None]
  - FATIGUE [None]
  - HAEMORRHAGE [None]
  - HOT FLUSH [None]
  - MOOD SWINGS [None]
  - ORAL MUCOSAL EXFOLIATION [None]
  - PAIN [None]
  - UROGENITAL HAEMORRHAGE [None]
